FAERS Safety Report 8251524-0 (Version None)
Quarter: 2012Q1

REPORT INFORMATION
  Report Type: 
  Country: None (occurrence: None)
  Receive Date: 20120321
  Receipt Date: 20100519
  Transmission Date: 20120608
  Serious: Yes (Hospitalization)
  Sender: FDA-Public Use
  Company Number: PHHY2010US33250

PATIENT
  Sex: Male

DRUGS (1)
  1. ILARIS [Suspect]
     Indication: CRYOPYRIN ASSOCIATED PERIODIC SYNDROME
     Dosage: UNK, SUBCUTANEOUS
     Route: 058
     Dates: start: 20100201

REACTIONS (1)
  - ARTHRITIS BACTERIAL [None]
